FAERS Safety Report 9236769 (Version 1)
Quarter: 2013Q2

REPORT INFORMATION
  Report Type: Spontaneous
  Country: US (occurrence: US)
  Receive Date: 20130417
  Receipt Date: 20130417
  Transmission Date: 20140414
  Serious: Yes (Death)
  Sender: FDA-Public Use
  Company Number: US-TEVA-398421USA

PATIENT
  Sex: Male

DRUGS (2)
  1. QVAR [Suspect]
     Indication: DYSPNOEA
  2. PROAIR [Suspect]
     Indication: DYSPNOEA

REACTIONS (1)
  - Leukaemia [Fatal]
